FAERS Safety Report 4547709-7 (Version None)
Quarter: 2005Q1

REPORT INFORMATION
  Report Type: 
  Country: None (occurrence: None)
  Receive Date: 20050107
  Receipt Date: 20040304
  Transmission Date: 20050727
  Serious: Yes (Hospitalization)
  Sender: FDA-Public Use
  Company Number: US-AMGEN-US068741

PATIENT
  Sex: Male

DRUGS (2)
  1. PROCRIT [Suspect]
     Indication: DIALYSIS
     Route: 042
     Dates: start: 20030701
  2. IRON [Concomitant]

REACTIONS (4)
  - HAEMOCHROMATOSIS [None]
  - INFECTION [None]
  - PARATHYROIDECTOMY [None]
  - THERAPEUTIC RESPONSE DECREASED [None]
